FAERS Safety Report 12638877 (Version 2)
Quarter: 2016Q4

REPORT INFORMATION
  Report Type: Report from Study
  Country: US (occurrence: US)
  Receive Date: 20160809
  Receipt Date: 20161118
  Transmission Date: 20170207
  Serious: Yes (Other)
  Sender: FDA-Public Use
  Company Number: US-ARIAD PHARMACEUTICALS, INC-2010US000106

PATIENT
  Age: 45 Year
  Sex: Male
  Weight: 84 kg

DRUGS (8)
  1. OXYCODONE [Concomitant]
     Active Substance: OXYCODONE
     Indication: HEADACHE
     Dosage: UNK
     Dates: start: 20101015
  2. ACETAMINOPHEN. [Concomitant]
     Active Substance: ACETAMINOPHEN
     Indication: PYREXIA
     Dosage: 500 MG, SINGLE
     Dates: start: 20101128, end: 20101128
  3. DIAZEPAM. [Concomitant]
     Active Substance: DIAZEPAM
     Indication: MYALGIA
     Dosage: UNK
     Dates: start: 20101015
  4. IBUPROFEN. [Concomitant]
     Active Substance: IBUPROFEN
     Indication: PYREXIA
     Dosage: 600 MG, SINGLE
     Dates: start: 20101128, end: 20101128
  5. NORMAL SALINE [Concomitant]
     Active Substance: SODIUM CHLORIDE
     Dosage: 1000 ML, BID
     Route: 042
     Dates: start: 20101128, end: 20101128
  6. PONATINIB [Suspect]
     Active Substance: PONATINIB
     Indication: HAEMATOLOGICAL MALIGNANCY
     Dosage: 45 MG, QD
     Route: 048
     Dates: start: 20100505, end: 20101201
  7. PONATINIB [Suspect]
     Active Substance: PONATINIB
     Dosage: 45 MG, QD
     Route: 048
     Dates: start: 20101216
  8. DIAZEPAM. [Concomitant]
     Active Substance: DIAZEPAM
     Indication: BONE PAIN

REACTIONS (1)
  - Thrombocytopenia [Recovered/Resolved]

NARRATIVE: CASE EVENT DATE: 20101201
